FAERS Safety Report 25097753 (Version 1)
Quarter: 2025Q1

REPORT INFORMATION
  Report Type: Spontaneous
  Country: FR (occurrence: FR)
  Receive Date: 20250320
  Receipt Date: 20250320
  Transmission Date: 20250409
  Serious: Yes (Life-Threatening)
  Sender: ROCHE
  Company Number: None

PATIENT
  Age: 24 Year
  Sex: Male
  Weight: 60 kg

DRUGS (2)
  1. CELLCEPT [Suspect]
     Active Substance: MYCOPHENOLATE MOFETIL
     Indication: Lung transplant
     Route: 048
     Dates: start: 20240820, end: 20241002
  2. TACROLIMUS [Suspect]
     Active Substance: TACROLIMUS
     Indication: Lung transplant
     Route: 048
     Dates: start: 20240820, end: 20240906

REACTIONS (1)
  - Thrombotic microangiopathy [Recovered/Resolved]

NARRATIVE: CASE EVENT DATE: 20240906
